FAERS Safety Report 4727103-6 (Version None)
Quarter: 2005Q3

REPORT INFORMATION
  Report Type: 
  Country: None (occurrence: None)
  Receive Date: 20050728
  Receipt Date: 20050721
  Transmission Date: 20060218
  Serious: Yes (Hospitalization)
  Sender: FDA-Public Use
  Company Number: BR-JNJFOC-20050705156

PATIENT
  Age: 28 Year
  Sex: Female

DRUGS (3)
  1. HALDOL [Suspect]
     Indication: ACUTE PSYCHOSIS
     Dosage: PATIENT TOOK 30 TABLETS AT ONCE
     Route: 048
  2. BIPERIDEN HYDROCHLORIDE TAB [Suspect]
     Indication: ACUTE PSYCHOSIS
     Dosage: PATIENT TOOK 30 TABLETS AT ONCE
  3. CLONAZEPAM [Suspect]
     Indication: ACUTE PSYCHOSIS
     Dosage: PATIENT TOOK 30 TABLETS AT ONCE

REACTIONS (4)
  - DRUG INTERACTION [None]
  - MIOSIS [None]
  - OVERDOSE [None]
  - SUICIDE ATTEMPT [None]
